FAERS Safety Report 8604424-8 (Version None)
Quarter: 2012Q3

REPORT INFORMATION
  Report Type: 
  Country: None (occurrence: None)
  Receive Date: 20120806
  Receipt Date: 20120806
  Transmission Date: 20120928
  Serious: No
  Sender: FDA-Public Use
  Company Number: None

PATIENT
  Age: 63 Year
  Sex: Male
  Weight: 93.8946 kg

DRUGS (1)
  1. ATORVASTATIN [Suspect]
     Indication: BLOOD CHOLESTEROL
     Dosage: 1 TAB DAILY
     Dates: start: 20120425, end: 20120719

REACTIONS (2)
  - PRODUCT SUBSTITUTION ISSUE [None]
  - MYALGIA [None]
